FAERS Safety Report 5081440-7 (Version None)
Quarter: 2006Q3

REPORT INFORMATION
  Report Type: 
  Country: None (occurrence: None)
  Receive Date: 20060811
  Receipt Date: 20060801
  Transmission Date: 20061208
  Serious: Yes (Disabling)
  Sender: FDA-Public Use
  Company Number: 0104-2828

PATIENT
  Sex: Male

DRUGS (2)
  1. ADVICOR [Suspect]
     Indication: BLOOD CHOLESTEROL INCREASED
  2. ADVICOR [Suspect]
     Indication: BLOOD TRIGLYCERIDES INCREASED

REACTIONS (29)
  - ALANINE AMINOTRANSFERASE INCREASED [None]
  - AMNESIA [None]
  - ANXIETY [None]
  - ARTHRALGIA [None]
  - BLEPHAROSPASM [None]
  - BLOOD CREATINE PHOSPHOKINASE INCREASED [None]
  - DEPRESSION [None]
  - DISTURBANCE IN ATTENTION [None]
  - EDUCATIONAL PROBLEM [None]
  - ERECTILE DYSFUNCTION [None]
  - FAMILY STRESS [None]
  - FEAR [None]
  - GYNAECOMASTIA [None]
  - HEART RATE INCREASED [None]
  - HEPATIC STEATOSIS [None]
  - HYPERTENSION [None]
  - INTERVERTEBRAL DISC COMPRESSION [None]
  - INTERVERTEBRAL DISC PROTRUSION [None]
  - MALAISE [None]
  - MUSCLE TWITCHING [None]
  - MYALGIA [None]
  - OESOPHAGEAL DILATATION [None]
  - PERFORMANCE STATUS DECREASED [None]
  - POLYP [None]
  - SCAR [None]
  - STRESS AT WORK [None]
  - SUICIDAL IDEATION [None]
  - TREMOR [None]
  - WEIGHT INCREASED [None]
